FAERS Safety Report 7056987-4 (Version None)
Quarter: 2010Q4

REPORT INFORMATION
  Report Type: 
  Country: None (occurrence: None)
  Receive Date: 20101022
  Receipt Date: 20101013
  Transmission Date: 20110411
  Serious: Yes (Other)
  Sender: FDA-Public Use
  Company Number: US-JNJFOC-20101003721

PATIENT
  Age: 47 Year
  Sex: Female
  Weight: 60.78 kg

DRUGS (10)
  1. REMICADE [Suspect]
     Indication: CROHN'S DISEASE
     Route: 042
  2. KLONOPIN [Concomitant]
  3. FLEXERIL [Concomitant]
  4. CYMBALTA [Concomitant]
  5. ZANTAC [Concomitant]
  6. PENTASA [Concomitant]
  7. PREDNISONE [Concomitant]
  8. CALCIUM [Concomitant]
  9. PROTONIX [Concomitant]
  10. LOMOTIL [Concomitant]

REACTIONS (1)
  - UPPER LIMB FRACTURE [None]
